FAERS Safety Report 8084875-3 (Version None)
Quarter: 2012Q1

REPORT INFORMATION
  Report Type: 
  Country: None (occurrence: None)
  Receive Date: 20120128
  Receipt Date: 20110318
  Transmission Date: 20120608
  Serious: No
  Sender: FDA-Public Use
  Company Number: US-ABBOTT-11P-163-0712819-00

PATIENT
  Age: 53 Year
  Sex: Female

DRUGS (15)
  1. NABUMETONE [Concomitant]
     Indication: RESTLESS LEGS SYNDROME
     Route: 048
  2. FLEXERIL [Concomitant]
     Indication: FIBROMYALGIA
  3. TEGRETOL [Concomitant]
     Indication: CONVULSION
     Route: 048
  4. AMITRIPTYLINE HCL [Concomitant]
     Indication: INSOMNIA
     Dosage: AT NIGHT
     Route: 048
  5. CYMBALTA [Concomitant]
     Indication: DEPRESSION
     Route: 048
  6. FOLIC ACID [Concomitant]
     Indication: RHEUMATOID ARTHRITIS
     Route: 048
  7. SENOKOT [Concomitant]
     Indication: CONSTIPATION PROPHYLAXIS
  8. VICODIN [Concomitant]
     Indication: PAIN
     Route: 048
  9. HUMIRA [Suspect]
     Indication: RHEUMATOID ARTHRITIS
     Dates: start: 20110201
  10. ARAVA [Suspect]
     Indication: PRODUCT USED FOR UNKNOWN INDICATION
  11. FENOFIBRATE [Concomitant]
     Indication: BLOOD CHOLESTEROL INCREASED
     Route: 048
  12. FENTANYL [Concomitant]
     Indication: PAIN
     Dosage: PER HOUR AS NEEDED
     Route: 062
  13. LORAZEPAM [Concomitant]
     Indication: FIBROMYALGIA
  14. ZANTAC [Concomitant]
     Indication: DYSPEPSIA
     Route: 048
  15. ZOCOR [Concomitant]
     Indication: BLOOD CHOLESTEROL INCREASED
     Route: 048

REACTIONS (7)
  - NASOPHARYNGITIS [None]
  - COUGH [None]
  - INSOMNIA [None]
  - RHINORRHOEA [None]
  - INJECTION SITE HAEMATOMA [None]
  - ENERGY INCREASED [None]
  - NAUSEA [None]
